FAERS Safety Report 4915252-9 (Version None)
Quarter: 2006Q1

REPORT INFORMATION
  Report Type: 
  Country: None (occurrence: None)
  Receive Date: 20060216
  Receipt Date: 20060216
  Transmission Date: 20060701
  Serious: Yes (Hospitalization)
  Sender: FDA-Public Use
  Company Number: None

PATIENT
  Sex: Male
  Weight: 120.2032 kg

DRUGS (1)
  1. XANAX [Suspect]
     Dosage: UNKNOWN, PO PRIOR TO ADMISSION
     Route: 048

REACTIONS (2)
  - DYSARTHRIA [None]
  - MENTAL STATUS CHANGES [None]
